FAERS Safety Report 25628781 (Version 1)
Quarter: 2025Q3

REPORT INFORMATION
  Report Type: Spontaneous
  Country: US (occurrence: US)
  Receive Date: 20250731
  Receipt Date: 20250731
  Transmission Date: 20251020
  Serious: No
  Sender: Tarsus Pharmaceuticals
  Company Number: US-TARSUS PHARMACEUTICALS-TSP-US-2025-000689

PATIENT

DRUGS (2)
  1. XDEMVY [Suspect]
     Active Substance: LOTILANER
     Indication: Product used for unknown indication
     Dosage: 1 DROP, BID, (ONE DROP INTO BOTH  EYES TWICE A DAY FOR SIX  WEEKS)
     Route: 047
     Dates: start: 20250709
  2. Cranberry probiotics [Concomitant]
     Indication: Product used for unknown indication

REACTIONS (3)
  - Ocular hyperaemia [Unknown]
  - Vision blurred [Unknown]
  - Condition aggravated [Unknown]
